FAERS Safety Report 11174535 (Version 2)
Quarter: 2015Q2

REPORT INFORMATION
  Report Type: Spontaneous
  Country: JP (occurrence: JP)
  Receive Date: 20150609
  Receipt Date: 20150625
  Transmission Date: 20150821
  Serious: Yes (Other)
  Sender: FDA-Public Use
  Company Number: JP-ELI_LILLY_AND_COMPANY-JP201506000537

PATIENT
  Age: 65 Year
  Sex: Female

DRUGS (4)
  1. SUNITINIB [Suspect]
     Active Substance: SUNITINIB
     Indication: BILE DUCT CANCER
  2. GEMZAR [Suspect]
     Active Substance: GEMCITABINE HYDROCHLORIDE
     Indication: BILE DUCT CANCER
  3. SUNITINIB [Suspect]
     Active Substance: SUNITINIB
     Indication: METASTATIC RENAL CELL CARCINOMA
     Dosage: 25 MG, OTHER
     Route: 065
  4. GEMZAR [Suspect]
     Active Substance: GEMCITABINE HYDROCHLORIDE
     Indication: METASTATIC RENAL CELL CARCINOMA
     Dosage: 750 MG/M2, OTHER
     Route: 042

REACTIONS (12)
  - Pulmonary congestion [Recovering/Resolving]
  - Hypoxia [Recovering/Resolving]
  - Lipase increased [Recovering/Resolving]
  - Hypothyroidism [Recovering/Resolving]
  - Pyrexia [Recovering/Resolving]
  - Neutropenia [Recovering/Resolving]
  - Blood alkaline phosphatase increased [Recovering/Resolving]
  - Inappropriate antidiuretic hormone secretion [Recovering/Resolving]
  - Respiratory distress [Recovering/Resolving]
  - Depressed level of consciousness [Recovering/Resolving]
  - Thrombocytopenia [Recovering/Resolving]
  - Gamma-glutamyltransferase increased [Recovering/Resolving]
